FAERS Safety Report 12777543 (Version 1)
Quarter: 2016Q3

REPORT INFORMATION
  Report Type: Spontaneous
  Country: US (occurrence: US)
  Receive Date: 20160924
  Receipt Date: 20160924
  Transmission Date: 20161109
  Serious: No
  Sender: FDA-Public Use
  Company Number: US-TEVA-684620USA

PATIENT
  Age: 34 Year
  Sex: Male
  Weight: 64.92 kg

DRUGS (2)
  1. CLONAZEPAM. [Suspect]
     Active Substance: CLONAZEPAM
     Indication: PANIC ATTACK
     Dosage: .5 MILLIGRAM DAILY;
     Route: 048
  2. CLONAZEPAM. [Suspect]
     Active Substance: CLONAZEPAM
     Indication: ANXIETY

REACTIONS (3)
  - Product use issue [Unknown]
  - Drug screen negative [Unknown]
  - Product quality issue [Unknown]

NARRATIVE: CASE EVENT DATE: 201512
